FAERS Safety Report 21101266 (Version 2)
Quarter: 2022Q3

REPORT INFORMATION
  Report Type: Report from Study
  Country: CO (occurrence: CO)
  Receive Date: 20220719
  Receipt Date: 20220913
  Transmission Date: 20221027
  Serious: Yes (Hospitalization, Other)
  Sender: FDA-Public Use
  Company Number: CO-BRISTOL-MYERS SQUIBB COMPANY-2022-064958

PATIENT
  Age: 77 Year
  Sex: Male
  Weight: 79 kg

DRUGS (2)
  1. ORENCIA [Suspect]
     Active Substance: ABATACEPT
     Indication: Rheumatoid arthritis
     Dosage: DOSE: 750 MG/ML; EVERY 28 DAYS
     Route: 058
     Dates: start: 20210414
  2. ORENCIA [Suspect]
     Active Substance: ABATACEPT
     Dosage: 125 MG/ML
     Route: 058
     Dates: start: 20220414

REACTIONS (5)
  - Arthralgia [Not Recovered/Not Resolved]
  - Fluid retention [Recovering/Resolving]
  - Chest pain [Recovering/Resolving]
  - Arrhythmia [Recovering/Resolving]
  - Off label use [Unknown]

NARRATIVE: CASE EVENT DATE: 20220701
